FAERS Safety Report 15820638 (Version 1)
Quarter: 2018Q4

REPORT INFORMATION
  Report Type: Spontaneous
  Country: US (occurrence: US)
  Receive Date: 20181217
  Receipt Date: 20181217
  Transmission Date: 20190205
  Serious: Yes (Hospitalization)
  Sender: FDA-Public Use
  Company Number: None

PATIENT
  Age: 67 Year
  Sex: Male
  Weight: 99.79 kg

DRUGS (2)
  1. CARBOPLATIN. [Suspect]
     Active Substance: CARBOPLATIN
     Indication: TONSIL CANCER
     Route: 042
     Dates: start: 20180828
  2. CETUXIMAB. [Suspect]
     Active Substance: CETUXIMAB
     Indication: TONSIL CANCER
     Route: 042
     Dates: start: 20180828

REACTIONS (10)
  - White blood cell count increased [None]
  - Radiation skin injury [None]
  - Diarrhoea [None]
  - Neutropenia [None]
  - Dehydration [None]
  - Oral pain [None]
  - Tachycardia [None]
  - Odynophagia [None]
  - Electrolyte imbalance [None]
  - Hypotension [None]

NARRATIVE: CASE EVENT DATE: 20180904
